FAERS Safety Report 5957660-3 (Version None)
Quarter: 2008Q4

REPORT INFORMATION
  Report Type: 
  Country: None (occurrence: None)
  Receive Date: 20081119
  Receipt Date: 20081111
  Transmission Date: 20090506
  Serious: Yes (Hospitalization)
  Sender: FDA-Public Use
  Company Number: JP-JNJFOC-20081103360

PATIENT
  Sex: Male

DRUGS (5)
  1. ITRACONAZOLE [Suspect]
     Route: 048
  2. ITRACONAZOLE [Suspect]
     Indication: DRUG USE FOR UNKNOWN INDICATION
     Route: 048
  3. ADONA [Concomitant]
     Route: 048
  4. TRANSAMIN [Concomitant]
     Route: 048
  5. DIGOXIN [Concomitant]
     Route: 048

REACTIONS (1)
  - DEHYDRATION [None]
